FAERS Safety Report 10945006 (Version 2)
Quarter: 2015Q2

REPORT INFORMATION
  Report Type: Report from Study
  Country: PT (occurrence: PT)
  Receive Date: 20150323
  Receipt Date: 20150519
  Transmission Date: 20150821
  Serious: Yes (Death, Other)
  Sender: FDA-Public Use
  Company Number: PT-ROCHE-1552977

PATIENT
  Age: 55 Year
  Sex: Male

DRUGS (5)
  1. RITUXIMAB [Suspect]
     Active Substance: RITUXIMAB
     Indication: VASCULITIS
     Dosage: 1000 MILLIGRAMS - TWO ADMINISTRATIONS
     Route: 065
     Dates: start: 20110115
  2. DEFLAZACORT [Concomitant]
     Active Substance: DEFLAZACORT
     Route: 065
     Dates: start: 20110720
  3. LEDERTREXATE [Concomitant]
     Active Substance: METHOTREXATE
     Route: 065
     Dates: start: 20090915
  4. SIMVASTATIN. [Concomitant]
     Active Substance: SIMVASTATIN
     Route: 065
     Dates: start: 20100211
  5. COAPROVEL [Concomitant]
     Active Substance: HYDROCHLOROTHIAZIDE\IRBESARTAN
     Route: 048
     Dates: start: 20070630

REACTIONS (4)
  - Acute pulmonary oedema [Fatal]
  - Cardiac arrest [Unknown]
  - Cardio-respiratory arrest [Unknown]
  - Off label use [Unknown]

NARRATIVE: CASE EVENT DATE: 20140724
